FAERS Safety Report 20542216 (Version 3)
Quarter: 2022Q3

REPORT INFORMATION
  Report Type: Report from Study
  Country: US (occurrence: US)
  Receive Date: 20220302
  Receipt Date: 20220819
  Transmission Date: 20221027
  Serious: Yes (Other)
  Sender: FDA-Public Use
  Company Number: US-TAKEDA-2022TUS013963

PATIENT
  Sex: Male

DRUGS (1)
  1. PONATINIB [Suspect]
     Active Substance: PONATINIB
     Indication: Chronic myeloid leukaemia recurrent
     Dosage: 30 MILLIGRAM, QD
     Route: 048

REACTIONS (6)
  - Hallucination [Unknown]
  - Asthenia [Recovered/Resolved]
  - Blood uric acid increased [Unknown]
  - Arthralgia [Unknown]
  - Product dose omission issue [Unknown]
  - Overdose [Unknown]
